FAERS Safety Report 9367139 (Version 1)
Quarter: 2013Q2

REPORT INFORMATION
  Report Type: Spontaneous
  Country: US (occurrence: US)
  Receive Date: 20130625
  Receipt Date: 20130625
  Transmission Date: 20140414
  Serious: No
  Sender: FDA-Public Use
  Company Number: US-ASTELLAS-2012US004491

PATIENT
  Sex: Female

DRUGS (2)
  1. VESICARE [Suspect]
     Indication: BLADDER DYSFUNCTION
     Dosage: 5 MG, UNKNOWN/D
     Route: 048
     Dates: start: 2010, end: 2011
  2. VESICARE [Suspect]
     Dosage: 10 MG, UID/QD
     Route: 048
     Dates: start: 2011

REACTIONS (2)
  - Nocturia [Recovered/Resolved]
  - Urine abnormality [Unknown]
